FAERS Safety Report 23944714 (Version 2)
Quarter: 2024Q2

REPORT INFORMATION
  Report Type: Spontaneous
  Country: JP (occurrence: JP)
  Receive Date: 20240606
  Receipt Date: 20240613
  Transmission Date: 20240716
  Serious: No
  Sender: FDA-Public Use
  Company Number: JP-shionogi-202404007

PATIENT
  Age: 75 Year
  Sex: Female

DRUGS (6)
  1. CYCLOPHOSPHAMIDE [Suspect]
     Active Substance: CYCLOPHOSPHAMIDE
     Indication: Breast cancer stage III
     Dosage: (4 COURSES OF EC THERAPY) ENDOXAN, AS NEOADJUVANT CHEMOTHERAPY (NAC)
     Route: 065
  2. CYCLOPHOSPHAMIDE [Suspect]
     Active Substance: CYCLOPHOSPHAMIDE
     Indication: Adenomyoepithelioma of breast
  3. DOCETAXEL [Suspect]
     Active Substance: DOCETAXEL\DOCETAXEL ANHYDROUS
     Indication: Breast cancer stage III
     Dosage: 1 COURSES OF DOCETAXEL HYDRATE (DTX) THERAPY AS NEOADJUVANT CHEMOTHERAPY (NAC)
     Route: 065
  4. DOCETAXEL [Suspect]
     Active Substance: DOCETAXEL\DOCETAXEL ANHYDROUS
     Indication: Adenomyoepithelioma of breast
  5. EPIRUBICIN HYDROCHLORIDE [Suspect]
     Active Substance: EPIRUBICIN HYDROCHLORIDE
     Indication: Breast cancer stage III
     Dosage: 4 COURSES OF EC THERAPY, AS NEOADJUVANT CHEMOTHERAPY (NAC)
     Route: 065
  6. EPIRUBICIN HYDROCHLORIDE [Suspect]
     Active Substance: EPIRUBICIN HYDROCHLORIDE
     Indication: Adenomyoepithelioma of breast

REACTIONS (1)
  - Neoplasm progression [Recovering/Resolving]
